FAERS Safety Report 6867016-7 (Version None)
Quarter: 2010Q3

REPORT INFORMATION
  Report Type: 
  Country: None (occurrence: None)
  Receive Date: 20100722
  Receipt Date: 20100719
  Transmission Date: 20110219
  Serious: Yes (Hospitalization)
  Sender: FDA-Public Use
  Company Number: US-ROCHE-716174

PATIENT
  Sex: Female
  Weight: 85.5 kg

DRUGS (9)
  1. TRASTUZUMAB [Suspect]
     Indication: BREAST CANCER
     Dosage: LOADING DOSE, FORM: VIALS
     Route: 042
  2. TRASTUZUMAB [Suspect]
     Dosage: FORM: VIALS, MAINTENANCE DOSE, TOTAL DOSE: 680 MG, DATE OF LAST DOSE PRIOR TO SAE: 07 JULY 2010
     Route: 042
     Dates: start: 20100616
  3. BEVACIZUMAB [Suspect]
     Indication: BREAST CANCER
     Dosage: FORM: VIALS, TOTAL DOSE: 1275 MG, DATE OF LAST DOSE PRIOR TO SAE: 07 JULY 2010
     Route: 042
     Dates: start: 20100616
  4. CARBOPLATIN [Suspect]
     Indication: BREAST CANCER
     Dosage: FORM: VIALS, DOSE LEVEL: 6 AUC, DATE OF LAST DOSE PRIOR TO SAE: 07 JULY 2010
     Route: 042
     Dates: start: 20100616
  5. DOCETAXEL [Suspect]
     Indication: BREAST CANCER
     Dosage: FORM: VIALS, TOTAL DOSE:140 MG, DATE OF LAST DOSE PRIOR TO SAE: 07 JULY 2010
     Route: 042
     Dates: start: 20100616
  6. OXYCODONE [Concomitant]
     Indication: PAIN
     Dates: start: 20100421
  7. DECADRON [Concomitant]
     Dates: start: 20100715
  8. COMPAZINE [Concomitant]
     Indication: NAUSEA
  9. EMEND [Concomitant]
     Dosage: TOTAL DAILY DOSE: QD
     Dates: start: 20100616

REACTIONS (1)
  - CHEST PAIN [None]
